FAERS Safety Report 9775431 (Version 1)
Quarter: 2013Q4

REPORT INFORMATION
  Report Type: Spontaneous
  Country: US (occurrence: US)
  Receive Date: 20131220
  Receipt Date: 20131220
  Transmission Date: 20140711
  Serious: No
  Sender: FDA-Public Use
  Company Number: US-GALDERMA-US13003412

PATIENT
  Age: 36 Year
  Sex: Female

DRUGS (5)
  1. MIRVASO (BRIMONIDINE) TOPICAL GEL, 0.33% [Suspect]
     Indication: ROSACEA
     Route: 061
     Dates: start: 20131026
  2. METROLOTION(METRONIDAZOLE) TOPICAL LOTION, 0.75% [Concomitant]
     Indication: ROSACEA
     Route: 061
  3. RETIN-A 0.025% [Concomitant]
     Indication: SKIN WRINKLING
     Route: 061
  4. NEUTROGENA EXTRA GENTLE CLEANSER [Concomitant]
     Indication: THERAPEUTIC SKIN CARE TOPICAL
     Route: 061
  5. NEOCUTIS EYE CREAM [Concomitant]
     Route: 061

REACTIONS (6)
  - Rebound effect [Recovering/Resolving]
  - Condition aggravated [Recovering/Resolving]
  - Feeling hot [Recovering/Resolving]
  - Erythema [Recovering/Resolving]
  - Flushing [Recovering/Resolving]
  - Alcohol use [None]
